FAERS Safety Report 5157231-5 (Version None)
Quarter: 2006Q4

REPORT INFORMATION
  Report Type: 
  Country: None (occurrence: None)
  Receive Date: 20061127
  Receipt Date: 20061113
  Transmission Date: 20070319
  Serious: Yes (Other)
  Sender: FDA-Public Use
  Company Number: PHNU2006DE03736

PATIENT
  Sex: Male

DRUGS (2)
  1. SANDIMMUNE [Suspect]
     Indication: APLASTIC ANAEMIA
     Dates: start: 20020101, end: 20060301
  2. PREDNISONE TAB [Suspect]

REACTIONS (3)
  - ACCOMMODATION DISORDER [None]
  - DIABETES MELLITUS NON-INSULIN-DEPENDENT [None]
  - MEMORY IMPAIRMENT [None]
